FAERS Safety Report 22538400 (Version 1)
Quarter: 2023Q2

REPORT INFORMATION
  Report Type: Spontaneous
  Country: US (occurrence: US)
  Receive Date: 20230609
  Receipt Date: 20230609
  Transmission Date: 20230722
  Serious: Yes (Other)
  Sender: FDA-Public Use
  Company Number: US-SA-SAC20230608000059

PATIENT
  Sex: Male

DRUGS (1)
  1. THYROGEN [Suspect]
     Active Substance: THYROTROPIN ALFA
     Indication: Thyroid cancer
     Dosage: 0.9 MG, QD (EVERY 24 HOURS FOR 2 DOSES)
     Route: 030
     Dates: start: 20220824

REACTIONS (1)
  - Nephrolithiasis [Unknown]
